FAERS Safety Report 7406183-3 (Version None)
Quarter: 2011Q2

REPORT INFORMATION
  Report Type: 
  Country: None (occurrence: None)
  Receive Date: 20110405
  Receipt Date: 20110405
  Transmission Date: 20111010
  Serious: Yes (Hospitalization)
  Sender: FDA-Public Use
  Company Number: None

PATIENT
  Age: 46 Year
  Sex: Male

DRUGS (2)
  1. ATIVAN [Suspect]
     Indication: MIGRAINE
     Dosage: 1MG ONE DOSE   PRIOR TO ADMISSION
  2. DIPHENHYDRAMINE 50MG/ML [Suspect]
     Indication: MIGRAINE
     Dosage: 100MG ONE DOSE PO  PRIOR TO ADMISSION
     Route: 048

REACTIONS (4)
  - CHEST PAIN [None]
  - TACHYCARDIA [None]
  - DRY MOUTH [None]
  - HALLUCINATION [None]
